FAERS Safety Report 19073650 (Version 2)
Quarter: 2022Q1

REPORT INFORMATION
  Report Type: Other
  Country: GB (occurrence: GB)
  Receive Date: 20210330
  Receipt Date: 20220125
  Transmission Date: 20220424
  Serious: Yes (Hospitalization, Disabling, Other)
  Sender: FDA-Public Use
  Company Number: None

PATIENT

DRUGS (3)
  1. DEXAMETHASONE [Suspect]
     Active Substance: DEXAMETHASONE
     Indication: Coronavirus infection
     Dosage: UNK
     Route: 065
     Dates: start: 20210124, end: 20210203
  2. TOCILIZUMAB [Suspect]
     Active Substance: TOCILIZUMAB
     Indication: Coronavirus infection
     Dosage: UNK
     Route: 065
     Dates: start: 20210128
  3. IBRUTINIB [Concomitant]
     Active Substance: IBRUTINIB
     Indication: Chronic lymphocytic leukaemia
     Dosage: UNK
     Route: 065

REACTIONS (9)
  - Off label use [Unknown]
  - Aspergillus infection [Recovered/Resolved]
  - Diabetes mellitus [Recovered/Resolved]
  - Sinusitis [Recovered/Resolved]
  - Anaesthetic complication [Recovered/Resolved]
  - Brain abscess [Recovering/Resolving]
  - Fungal infection [Recovered/Resolved]
  - Hemiparesis [Unknown]
  - Diabetes mellitus inadequate control [Unknown]

NARRATIVE: CASE EVENT DATE: 20210208
